FAERS Safety Report 17508300 (Version 3)
Quarter: 2024Q1

REPORT INFORMATION
  Report Type: Spontaneous
  Country: US (occurrence: US)
  Receive Date: 20200306
  Receipt Date: 20240331
  Transmission Date: 20240409
  Serious: Yes (Hospitalization)
  Sender: FDA-Public Use
  Company Number: US-SA-2020SA059365

PATIENT
  Age: 50 Year
  Sex: Male
  Weight: 78.92 kg

DRUGS (22)
  1. CEREZYME [Suspect]
     Active Substance: IMIGLUCERASE
     Indication: Lipidosis
     Dosage: 4800 U, QOW
     Route: 041
     Dates: start: 20060905
  2. CEREZYME [Suspect]
     Active Substance: IMIGLUCERASE
     Indication: Fabry^s disease
     Dosage: 4800 UNIT, QOW
     Route: 041
     Dates: start: 20130327, end: 202302
  3. CEREZYME [Suspect]
     Active Substance: IMIGLUCERASE
     Indication: Neurodermatitis
     Dosage: UNK, QD
     Route: 042
  4. CEREZYME [Suspect]
     Active Substance: IMIGLUCERASE
     Indication: Gaucher^s disease
  5. FENTANYL [Concomitant]
     Active Substance: FENTANYL\FENTANYL CITRATE
     Dosage: UNK
  6. PERCOCET [Concomitant]
     Active Substance: ACETAMINOPHEN\OXYCODONE HYDROCHLORIDE
  7. ACETAMINOPHEN [Concomitant]
     Active Substance: ACETAMINOPHEN
  8. DIPHENHYDRAMINE [Concomitant]
     Active Substance: DIPHENHYDRAMINE
  9. SODIUM CHLORIDE [Concomitant]
     Active Substance: SODIUM CHLORIDE
  10. EPINEPHRINE MINIJET [Concomitant]
  11. STERILE WATER [Concomitant]
     Active Substance: WATER
  12. ESCITALOPRAM [Concomitant]
     Active Substance: ESCITALOPRAM OXALATE
  13. ALPRAZOLAM [Concomitant]
     Active Substance: ALPRAZOLAM
  14. TAMSULOSIN [Concomitant]
     Active Substance: TAMSULOSIN
  15. DYAZIDE [Concomitant]
     Active Substance: HYDROCHLOROTHIAZIDE\TRIAMTERENE
  16. DIPHENHYDRAMINE HYDROCHLORIDE [Concomitant]
     Active Substance: DIPHENHYDRAMINE HYDROCHLORIDE
     Dosage: UNK
  17. EPINEPHRINE [Concomitant]
     Active Substance: EPINEPHRINE
     Dosage: UNK
  18. BUMETANIDE [Concomitant]
     Active Substance: BUMETANIDE
     Dosage: UNK
  19. LANSOPRAZOLE [Concomitant]
     Active Substance: LANSOPRAZOLE
     Dosage: UNK
  20. ACYCLOVIR [Concomitant]
     Active Substance: ACYCLOVIR
     Dosage: UNK
  21. DEXAMETHASONE [Concomitant]
     Active Substance: DEXAMETHASONE
     Dosage: UNK
  22. SODIUM CHLORIDE [Concomitant]
     Active Substance: SODIUM CHLORIDE
     Dosage: UNK

REACTIONS (6)
  - Haemodialysis complication [Unknown]
  - Full blood count abnormal [Unknown]
  - Haematological infection [Unknown]
  - Laboratory test abnormal [Unknown]
  - Product use in unapproved indication [Unknown]
  - Off label use [Unknown]

NARRATIVE: CASE EVENT DATE: 20060905
